FAERS Safety Report 6659052-0 (Version None)
Quarter: 2010Q1

REPORT INFORMATION
  Report Type: 
  Country: None (occurrence: None)
  Receive Date: 20100324
  Receipt Date: 20100317
  Transmission Date: 20100710
  Serious: Yes (Other)
  Sender: FDA-Public Use
  Company Number: 2010SP016784

PATIENT
  Age: 9 Year
  Sex: Male
  Weight: 30.5 kg

DRUGS (5)
  1. NASONEX [Suspect]
     Indication: ASTHMA
  2. NASONEX [Suspect]
     Indication: HOUSE DUST ALLERGY
  3. BECOTIDE [Concomitant]
  4. AERIUS [Concomitant]
  5. SINGULAIR [Concomitant]

REACTIONS (2)
  - CUSHINGOID [None]
  - GROWTH RETARDATION [None]
